FAERS Safety Report 8905090 (Version 1)
Quarter: 2012Q4

REPORT INFORMATION
  Report Type: 
  Country: US (occurrence: US)
  Receive Date: 20121109
  Receipt Date: 20121109
  Transmission Date: 20130627
  Serious: Yes (Life-Threatening, Hospitalization, Other)
  Sender: FDA-Public Use
  Company Number: US-ASTRAZENECA-2012SE84797

PATIENT
  Age: 48 Year
  Sex: Female
  Weight: 99.8 kg

DRUGS (9)
  1. SEROQUEL [Suspect]
     Indication: ANXIETY
     Dosage: QUETIAPINE
     Route: 048
  2. SEROQUEL [Suspect]
     Indication: ANXIETY
     Route: 048
  3. SEROQUEL [Suspect]
     Indication: ANXIETY
     Route: 048
  4. ARIPIPRAZOLE [Concomitant]
  5. CITALOPRAM [Concomitant]
     Indication: AFFECTIVE DISORDER
  6. PROPRANOLOL [Concomitant]
     Indication: ANXIETY
  7. PRAZOSIN [Concomitant]
     Indication: NIGHTMARE
     Dosage: 2 - 3 MG EVERY NIGHT
     Dates: start: 2011
  8. PRAZOSIN [Concomitant]
     Indication: NIGHTMARE
  9. ABILIFY [Concomitant]

REACTIONS (16)
  - Suicide attempt [Unknown]
  - Suicidal ideation [Unknown]
  - Anxiety [Recovered/Resolved]
  - Hallucination, auditory [Unknown]
  - Cognitive disorder [Unknown]
  - Depression [Unknown]
  - Adverse event [Unknown]
  - Insomnia [Not Recovered/Not Resolved]
  - Tachyphrenia [Unknown]
  - Psychotic disorder [Unknown]
  - Panic attack [Unknown]
  - Schizoaffective disorder [Recovered/Resolved]
  - Hallucination, visual [Unknown]
  - Nightmare [Recovered/Resolved]
  - Abnormal dreams [Unknown]
  - Drug dose omission [Unknown]
